FAERS Safety Report 4311034-X (Version None)
Quarter: 2004Q1

REPORT INFORMATION
  Report Type: 
  Country: None (occurrence: None)
  Receive Date: 20040302
  Receipt Date: 20030209
  Transmission Date: 20041129
  Serious: Yes (Hospitalization, Other)
  Sender: FDA-Public Use
  Company Number: KII-2003-0007398

PATIENT
  Age: 45 Year
  Sex: Male

DRUGS (6)
  1. MORPHINE SULFATE (SIMILAR TO NDA 19-516)(MORPHINE SULFATE) UNKNOWN [Suspect]
  2. CLONIDINE [Suspect]
     Dosage: ORAL
     Route: 048
  3. AMPHETAMINE SULFATE TAB [Suspect]
  4. CANNABIS (CANNABIS) [Suspect]
  5. PROMETHAZINE [Concomitant]
  6. KLONOPIN [Concomitant]

REACTIONS (17)
  - ABNORMAL BEHAVIOUR [None]
  - ABSCESS [None]
  - ACID BASE BALANCE ABNORMAL [None]
  - AGITATION [None]
  - BRADYCARDIA [None]
  - COMA [None]
  - ELECTROCARDIOGRAM PR SHORTENED [None]
  - ELECTROCARDIOGRAM QRS COMPLEX PROLONGED [None]
  - ELECTROCARDIOGRAM QT PROLONGED [None]
  - LOCAL SWELLING [None]
  - OVERDOSE [None]
  - PCO2 ABNORMAL [None]
  - PH BODY FLUID ABNORMAL [None]
  - RESPIRATORY RATE INCREASED [None]
  - TORSADE DE POINTES [None]
  - VENTRICULAR TACHYCARDIA [None]
  - WOLFF-PARKINSON-WHITE SYNDROME [None]
